FAERS Safety Report 6521740-4 (Version None)
Quarter: 2009Q4

REPORT INFORMATION
  Report Type: 
  Country: None (occurrence: None)
  Receive Date: 20091230
  Receipt Date: 20091223
  Transmission Date: 20100525
  Serious: No
  Sender: FDA-Public Use
  Company Number: US-ASTRAZENECA-2009SE33328

PATIENT
  Sex: Female

DRUGS (1)
  1. SEROQUEL [Suspect]
     Route: 048

REACTIONS (2)
  - SOMNOLENCE [None]
  - WHITE BLOOD CELL COUNT DECREASED [None]
